FAERS Safety Report 5318936-6 (Version None)
Quarter: 2007Q2

REPORT INFORMATION
  Report Type: 
  Country: None (occurrence: None)
  Receive Date: 20070503
  Receipt Date: 20070503
  Transmission Date: 20071010
  Serious: Yes (Other)
  Sender: FDA-Public Use
  Company Number: None

PATIENT
  Age: 25 Year
  Sex: Female
  Weight: 61.6892 kg

DRUGS (1)
  1. PROAIR HFA [Suspect]
     Indication: ASTHMA
     Dosage: 2 PUFFS   4X A DAY PRN   PO
     Route: 048
     Dates: start: 20070401

REACTIONS (7)
  - ANXIETY [None]
  - DRUG EFFECT DECREASED [None]
  - HEART RATE INCREASED [None]
  - INSOMNIA [None]
  - PHARMACEUTICAL PRODUCT COMPLAINT [None]
  - TREMOR [None]
  - VISUAL DISTURBANCE [None]
